FAERS Safety Report 7488133-7 (Version None)
Quarter: 2011Q2

REPORT INFORMATION
  Report Type: 
  Country: None (occurrence: None)
  Receive Date: 20110518
  Receipt Date: 20110512
  Transmission Date: 20111010
  Serious: Yes (Death, Life-Threatening)
  Sender: FDA-Public Use
  Company Number: GB-PFIZER INC-2011102975

PATIENT
  Age: 80 Year
  Sex: Male
  Weight: 89.6 kg

DRUGS (11)
  1. TESTOSTERONE [Concomitant]
     Indication: BLOOD FOLLICLE STIMULATING HORMONE DECREASED
  2. NEBIDO [Concomitant]
     Indication: BLOOD FOLLICLE STIMULATING HORMONE DECREASED
  3. TESTOSTERONE [Concomitant]
     Indication: HYPOGONADISM MALE
     Dosage: 5 MG, UNK
     Dates: start: 20000317
  4. TESTOSTERONE [Concomitant]
     Indication: BLOOD LUTEINISING HORMONE DECREASED
  5. SOMATROPIN [Suspect]
     Indication: HYPOPITUITARISM
     Dosage: 0.5 MG/DAY ( 7 INJECTIONS PER WEEK)
     Route: 058
     Dates: start: 19980423
  6. HYDROCORTISONE [Concomitant]
     Indication: BLOOD CORTICOTROPHIN DECREASED
     Dosage: 35 MG, UNK
     Dates: start: 20050112
  7. NEBIDO [Concomitant]
     Indication: HYPOGONADISM MALE
  8. SUSTANON [Concomitant]
     Indication: BLOOD LUTEINISING HORMONE DECREASED
     Dosage: 250 MG, UNK
     Dates: start: 20000629
  9. NEBIDO [Concomitant]
     Indication: BLOOD LUTEINISING HORMONE DECREASED
     Dosage: 1000 MG, UNK
     Dates: start: 20070119
  10. SUSTANON [Concomitant]
     Indication: BLOOD FOLLICLE STIMULATING HORMONE DECREASED
  11. SUSTANON [Concomitant]
     Indication: HYPOGONADISM MALE

REACTIONS (1)
  - DEATH [None]
